FAERS Safety Report 11021535 (Version 1)
Quarter: 2015Q2

REPORT INFORMATION
  Report Type: Spontaneous
  Country: US (occurrence: US)
  Receive Date: 20150413
  Receipt Date: 20150413
  Transmission Date: 20150821
  Serious: Yes (Hospitalization, Other)
  Sender: FDA-Public Use
  Company Number: US-BAUSCH-BL-2015-010964

PATIENT
  Sex: Male

DRUGS (1)
  1. XENAZINE [Suspect]
     Active Substance: TETRABENAZINE
     Indication: HUNTINGTON^S DISEASE
     Dosage: 62.5 MG IN THE MORNING, 62.5 MG MID-DAY, 50 MG IN THE EVENING
     Route: 048

REACTIONS (2)
  - Prescribed overdose [Unknown]
  - Hospitalisation [Unknown]
